FAERS Safety Report 22193238 (Version 1)
Quarter: 2023Q2

REPORT INFORMATION
  Report Type: Spontaneous
  Country: CH (occurrence: CH)
  Receive Date: 20230410
  Receipt Date: 20230410
  Transmission Date: 20230721
  Serious: Yes (Other)
  Sender: FDA-Public Use
  Company Number: None

PATIENT
  Sex: Male

DRUGS (5)
  1. TOFACITINIB [Suspect]
     Active Substance: TOFACITINIB
     Indication: Rheumatoid arthritis
     Dosage: 5 MG, 2X/DAY
     Route: 064
     Dates: end: 202211
  2. QUETIAPINE [Suspect]
     Active Substance: QUETIAPINE
     Dosage: THE VARIABLE DOSAGE BETWEEN 100 AND 150 MG 1X/DAY
     Route: 064
     Dates: end: 202211
  3. QUETIAPINE [Suspect]
     Active Substance: QUETIAPINE
     Dosage: IN TOTAL
     Route: 064
     Dates: start: 20221014, end: 20221014
  4. PAROXETINE [Concomitant]
     Active Substance: PAROXETINE
     Dosage: 25 MG, DAILY
     Route: 064
     Dates: start: 202202, end: 202204
  5. LORAZEPAM [Concomitant]
     Active Substance: LORAZEPAM
     Dosage: 2 MG, 1X/DAY
     Route: 064
     Dates: end: 202211

REACTIONS (3)
  - Foetal exposure during pregnancy [Unknown]
  - Foetal growth restriction [Unknown]
  - Foetal exposure during pregnancy [Unknown]

NARRATIVE: CASE EVENT DATE: 20220101
